FAERS Safety Report 8882750 (Version 2)
Quarter: 2012Q4

REPORT INFORMATION
  Report Type: 
  Country: GB (occurrence: GB)
  Receive Date: 20121102
  Receipt Date: 20121123
  Transmission Date: 20130627
  Serious: Yes (Other)
  Sender: FDA-Public Use
  Company Number: PHHO2012GB015729

PATIENT
  Age: 66 Year
  Sex: Female
  Weight: 89.5 kg

DRUGS (6)
  1. AFINITOR [Suspect]
     Indication: GASTRIC CANCER
     Dosage: 10 mg, UNK
     Route: 048
     Dates: start: 20100401, end: 20121101
  2. SIMVASTATIN [Concomitant]
     Dosage: UNK
  3. THYROXINE [Concomitant]
     Dosage: UNK
  4. LANTUS [Concomitant]
     Dosage: 150 U, UNK
     Route: 065
     Dates: start: 201103
  5. PARACETAMOL [Concomitant]
     Dosage: 1 g, UNK
     Route: 065
     Dates: start: 201202
  6. BETNOVATE [Concomitant]
     Dosage: UNK
     Dates: start: 201106

REACTIONS (1)
  - Malignant melanoma [Not Recovered/Not Resolved]
